FAERS Safety Report 19208307 (Version 2)
Quarter: 2021Q3

REPORT INFORMATION
  Report Type: Spontaneous
  Country: GB (occurrence: GB)
  Receive Date: 20210503
  Receipt Date: 20210702
  Transmission Date: 20211014
  Serious: Yes (Hospitalization, Other)
  Sender: FDA-Public Use
  Company Number: GB-B.I. PHARMACEUTICALS,INC./RIDGEFIELD-2021-BI-099558

PATIENT
  Age: 67 Year
  Sex: Female
  Weight: 72.5 kg

DRUGS (18)
  1. BEVACIZUMAB. [Suspect]
     Active Substance: BEVACIZUMAB
     Indication: NON-SMALL CELL LUNG CANCER
     Dates: start: 20201214
  2. CARBOPLATIN. [Suspect]
     Active Substance: CARBOPLATIN
     Dates: start: 20201214
  3. ATEZOLIZUMAB. [Suspect]
     Active Substance: ATEZOLIZUMAB
     Indication: NON-SMALL CELL LUNG CANCER
     Dates: start: 20201214
  4. ETOPOSIDE. [Suspect]
     Active Substance: ETOPOSIDE
     Indication: NON-SMALL CELL LUNG CANCER
  5. DEXAMETHASONE. [Concomitant]
     Active Substance: DEXAMETHASONE
     Indication: PRODUCT USED FOR UNKNOWN INDICATION
     Dosage: 8
     Dates: start: 20201214, end: 20201214
  6. GRANISETRON [Concomitant]
     Active Substance: GRANISETRON
     Indication: PRODUCT USED FOR UNKNOWN INDICATION
     Dates: start: 20201214, end: 20201214
  7. PACLITAXEL. [Suspect]
     Active Substance: PACLITAXEL
     Indication: NON-SMALL CELL LUNG CANCER
     Dates: start: 20201214
  8. GRANISETRON [Concomitant]
     Active Substance: GRANISETRON
     Dates: start: 20210201, end: 20210201
  9. DEXAMETHASONE. [Concomitant]
     Active Substance: DEXAMETHASONE
     Dates: start: 20210201, end: 20210201
  10. CARBOPLATIN. [Suspect]
     Active Substance: CARBOPLATIN
     Indication: NON-SMALL CELL LUNG CANCER
     Dosage: UNKNOWN
  11. CHLORPHENAMINE [Concomitant]
     Active Substance: CHLORPHENIRAMINE MALEATE
     Dosage: 10
     Dates: start: 20210201, end: 20210201
  12. AVASTIN [Suspect]
     Active Substance: BEVACIZUMAB
     Indication: NON-SMALL CELL LUNG CANCER
     Dates: start: 20201214
  13. GILOTRIF [Suspect]
     Active Substance: AFATINIB
     Indication: NEOPLASM MALIGNANT
     Dates: start: 20201214, end: 20201214
  14. ATEZOLIZUMAB. [Suspect]
     Active Substance: ATEZOLIZUMAB
     Dates: start: 20210201
  15. DEXAMETHASONE. [Concomitant]
     Active Substance: DEXAMETHASONE
     Dates: start: 20210111, end: 20210111
  16. ATEZOLIZUMAB. [Suspect]
     Active Substance: ATEZOLIZUMAB
     Dates: start: 20210111
  17. CHLORPHENAMINE [Concomitant]
     Active Substance: CHLORPHENIRAMINE MALEATE
     Indication: PRODUCT USED FOR UNKNOWN INDICATION
     Dosage: 10
     Dates: start: 20201214, end: 20201214
  18. CHLORPHENAMINE [Concomitant]
     Active Substance: CHLORPHENIRAMINE MALEATE
     Dates: start: 20210222, end: 20210222

REACTIONS (8)
  - Alopecia [Recovered/Resolved]
  - Product use in unapproved indication [Unknown]
  - Gamma-glutamyltransferase increased [Not Recovered/Not Resolved]
  - Fatigue [Not Recovered/Not Resolved]
  - Nausea [Recovered/Resolved]
  - Abdominal pain [Recovered/Resolved]
  - Amylase increased [Not Recovered/Not Resolved]
  - Constipation [Not Recovered/Not Resolved]

NARRATIVE: CASE EVENT DATE: 20201231
